FAERS Safety Report 24761147 (Version 1)
Quarter: 2024Q4

REPORT INFORMATION
  Report Type: Spontaneous
  Country: CN (occurrence: CN)
  Receive Date: 20241220
  Receipt Date: 20241220
  Transmission Date: 20250114
  Serious: Yes (Hospitalization)
  Sender: NOVO NORDISK
  Company Number: CN-NOVOPROD-1336216

PATIENT
  Age: 65 Year
  Sex: Female

DRUGS (2)
  1. INSULIN ASPART [Suspect]
     Active Substance: INSULIN ASPART
     Indication: Type 2 diabetes mellitus
     Dosage: UNK
     Dates: start: 2006, end: 2019
  2. ACARBOSE [Concomitant]
     Active Substance: ACARBOSE
     Dosage: ONE TABLET WAS TAKEN AT BREAKFAST, AND TWO TABLETS WERE TAKEN AT LUNCH AND DINNER.

REACTIONS (1)
  - Latent autoimmune diabetes in adults [Unknown]

NARRATIVE: CASE EVENT DATE: 20190101
